FAERS Safety Report 22157174 (Version 1)
Quarter: 2023Q1

REPORT INFORMATION
  Report Type: Spontaneous
  Country: US (occurrence: None)
  Receive Date: 20230330
  Receipt Date: 20230330
  Transmission Date: 20230418
  Serious: Yes (Life-Threatening)
  Sender: FDA-Public Use
  Company Number: None

PATIENT
  Age: 77 Year
  Sex: Female
  Weight: 85 kg

DRUGS (1)
  1. FERRIC DERISOMALTOSE [Suspect]
     Active Substance: FERRIC DERISOMALTOSE
     Indication: Blood iron decreased
     Dosage: OTHER FREQUENCY : ONCE;?
     Route: 041
     Dates: start: 20230329, end: 20230329

REACTIONS (2)
  - Anaphylactic shock [None]
  - Infusion related reaction [None]

NARRATIVE: CASE EVENT DATE: 20230329
